FAERS Safety Report 17742482 (Version 2)
Quarter: 2020Q2

REPORT INFORMATION
  Report Type: Report from Study
  Country: US (occurrence: US)
  Receive Date: 20200504
  Receipt Date: 20200608
  Transmission Date: 20200714
  Serious: Yes (Other)
  Sender: FDA-Public Use
  Company Number: NVSC2020US119194

PATIENT
  Sex: Female

DRUGS (1)
  1. PIQRAY [Suspect]
     Active Substance: ALPELISIB
     Indication: PRODUCT USED FOR UNKNOWN INDICATION
     Route: 048

REACTIONS (6)
  - Neuropathy peripheral [Unknown]
  - Fatigue [Unknown]
  - Eating disorder [Unknown]
  - Pain [Unknown]
  - Glossodynia [Unknown]
  - Pyrexia [Unknown]
